FAERS Safety Report 6021377-X (Version None)
Quarter: 2008Q4

REPORT INFORMATION
  Report Type: 
  Country: None (occurrence: None)
  Receive Date: 20081229
  Receipt Date: 20081215
  Transmission Date: 20090506
  Serious: Yes (Life-Threatening)
  Sender: FDA-Public Use
  Company Number: B0550357A

PATIENT
  Age: 56 Year
  Sex: Male

DRUGS (10)
  1. AUGMENTIN '125' [Suspect]
     Dosage: 1G PER DAY
     Route: 042
     Dates: start: 20080908, end: 20080908
  2. NIMBEX [Suspect]
     Dosage: 8G PER DAY
     Route: 042
     Dates: start: 20080908, end: 20080908
  3. SUFENTANIL [Suspect]
     Dosage: 2ML TWICE PER DAY
     Route: 042
     Dates: start: 20080908, end: 20080908
  4. PROPOFOL [Suspect]
     Dosage: 200MG PER DAY
     Route: 042
     Dates: start: 20080908, end: 20080908
  5. MIDAZOLAM HCL [Suspect]
     Route: 042
     Dates: start: 20080908, end: 20080908
  6. VOLUVEN [Concomitant]
     Route: 042
     Dates: start: 20080908, end: 20080908
  7. LOXEN [Concomitant]
     Route: 048
  8. NEBIVOLOL [Concomitant]
     Dosage: 5MG TWICE PER DAY
     Route: 048
  9. INEGY [Concomitant]
     Dosage: 10MG PER DAY
     Route: 048
  10. LEXOMIL [Concomitant]
     Route: 048
     Dates: start: 20080907, end: 20080908

REACTIONS (1)
  - ANAPHYLACTOID SHOCK [None]
